FAERS Safety Report 9361991 (Version 1)
Quarter: 2013Q2

REPORT INFORMATION
  Report Type: Spontaneous
  Country: FR (occurrence: FR)
  Receive Date: 20130621
  Receipt Date: 20130621
  Transmission Date: 20140414
  Serious: Yes (Hospitalization)
  Sender: FDA-Public Use
  Company Number: FR-PFIZER INC-2013183479

PATIENT
  Age: 26 Year
  Sex: Female

DRUGS (9)
  1. TIGECYCLINE [Suspect]
     Dosage: UNK
     Dates: start: 20130506, end: 20130510
  2. TAZOCILLINE [Concomitant]
     Indication: PYREXIA
     Dosage: UNK
     Dates: start: 20130419, end: 20130506
  3. TAZOCILLINE [Concomitant]
     Indication: ABDOMINAL PAIN
  4. ROCEPHINE [Concomitant]
     Indication: PYREXIA
     Dosage: UNK
     Dates: end: 20130419
  5. ROCEPHINE [Concomitant]
     Indication: ABDOMINAL PAIN
  6. FLAGYL ^AVENTIS^ [Concomitant]
     Indication: PYREXIA
     Dosage: UNK
     Dates: end: 20130419
  7. FLAGYL ^AVENTIS^ [Concomitant]
     Indication: ABDOMINAL PAIN
     Dosage: UNK
     Dates: start: 20130506
  8. DOXYCYCLINE [Concomitant]
     Indication: PYREXIA
     Dosage: UNK
     Dates: start: 20130430
  9. DOXYCYCLINE [Concomitant]
     Indication: ABDOMINAL PAIN

REACTIONS (1)
  - Urticaria [Recovered/Resolved]
